FAERS Safety Report 7466185-8 (Version None)
Quarter: 2011Q2

REPORT INFORMATION
  Report Type: 
  Country: None (occurrence: None)
  Receive Date: 20110509
  Receipt Date: 20110425
  Transmission Date: 20111010
  Serious: Yes (Hospitalization)
  Sender: FDA-Public Use
  Company Number: JP-ELI_LILLY_AND_COMPANY-JP201104002503

PATIENT
  Age: 53 Year
  Sex: Female

DRUGS (4)
  1. LIVALO [Concomitant]
     Indication: HYPERLIPIDAEMIA
     Dosage: 2 MG, UNK
     Route: 048
     Dates: end: 20081023
  2. ZYPREXA [Suspect]
     Dosage: 10 MG, QD
     Route: 048
     Dates: start: 20081023, end: 20081024
  3. ZYPREXA [Suspect]
     Indication: BIPOLAR I DISORDER
     Dosage: 20 MG, QD
     Route: 048
     Dates: end: 20081022
  4. ZYPREXA [Suspect]
     Dosage: 5 MG, QD
     Route: 048
     Dates: start: 20081025, end: 20081027

REACTIONS (4)
  - DEPRESSION [None]
  - RHABDOMYOLYSIS [None]
  - MANIA [None]
  - ABULIA [None]
